FAERS Safety Report 9204494 (Version 1)
Quarter: 2013Q1

REPORT INFORMATION
  Report Type: Spontaneous
  Country: US (occurrence: None)
  Receive Date: 20120709
  Receipt Date: 20120709
  Transmission Date: 20140127
  Serious: No
  Sender: FDA-Public Use
  Company Number: 2012HGS-003439

PATIENT
  Age: 61 Year
  Sex: Female
  Weight: 90.72 kg

DRUGS (19)
  1. BENLYSTA [Suspect]
     Dosage: 1 IN 28 D
     Route: 041
     Dates: start: 20120326
  2. GABAPENTIN (GABAPENTIN) (GABAPENTIN) [Concomitant]
  3. NORCO (VICODIN) (PARACETMAOL, HYDROCODONE BITARTRATE) [Concomitant]
  4. COREG (CARVEDILOL) (CARVEDILOL [Concomitant]
  5. METHADONE (METHADONE) (METHADONE) [Concomitant]
  6. SPIRONOLACTONE (SPIRONOLACTONE) (SPIRONOLACTONE) [Concomitant]
  7. ZANTAC (RANITIDONE HYDROCHLORIDE) (RANITIDINE HYDROCHLORIDE) [Concomitant]
  8. NEXIUM (ESOMEPRAZOLE MAGNESIUM) (ESOMEPRAZOLE MAGNESIUM ) [Concomitant]
  9. MIRAPEX (PRAMIPEXOLE DIHYDROCHLORIDE) (PRAMIPEXOLE DIHYDROCHLORIDE) [Concomitant]
  10. AMBIEN (ZOLPIDEM TARTRATE) (ZOLPIDEM TARTRATE) [Concomitant]
  11. PLAQUENIL (HYDROCHLOROQUINE PHOSPHATE) (HYDROCHLORQUINE PHOSPHATE) [Concomitant]
  12. METFORMIN (METFORMIN) (METFORMIN) [Concomitant]
  13. LEVEMIR (INSULIN DETEMIR) (INSULIN DETEMIR) [Concomitant]
  14. FOLIC ACID (FOLIC ACID) (FOLIC ACID) [Concomitant]
  15. XANAX (ALPRAZOLAM) (ALPRAZOLAM) [Concomitant]
  16. MICARDIS (TELMISARTAN) (TELMISARTAN) [Concomitant]
  17. CALCIUM (CALCIUM) (CALCIUM) [Concomitant]
  18. ASPIRIN (ACETYLSALICYLIC ACID) (ACETYLSALICYLIC ACID) [Concomitant]
  19. SAVELLA (MILNACIPRAN HYDROCHLORIDE) (MILNACIPRAN HYDROCHLORIDE) [Concomitant]

REACTIONS (4)
  - Feeling hot [None]
  - Throat tightness [None]
  - Throat irritation [None]
  - Urticaria [None]
